FAERS Safety Report 24046255 (Version 1)
Quarter: 2024Q3

REPORT INFORMATION
  Report Type: Spontaneous
  Country: US (occurrence: None)
  Receive Date: 20240703
  Receipt Date: 20240703
  Transmission Date: 20241016
  Serious: Yes (Hospitalization)
  Sender: Public
  Company Number: None

PATIENT
  Age: 90 Year
  Sex: Male

DRUGS (3)
  1. COLISTIMETHATE SODIUM [Suspect]
     Active Substance: COLISTIMETHATE SODIUM
     Indication: Bacterial infection
     Dosage: OTHER QUANTITY : AS DIRECTED;?FREQUENCY : TWICE A DAY;?
     Route: 055
     Dates: start: 20240110
  2. STERILE WATER FOR INJECTI [Concomitant]
  3. XTANDI [Concomitant]
     Active Substance: ENZALUTAMIDE

REACTIONS (2)
  - Dyspnoea [None]
  - Intentional dose omission [None]

NARRATIVE: CASE EVENT DATE: 20240622
